FAERS Safety Report 6337474-5 (Version None)
Quarter: 2009Q3

REPORT INFORMATION
  Report Type: 
  Country: None (occurrence: None)
  Receive Date: 20090902
  Receipt Date: 20090820
  Transmission Date: 20100115
  Serious: Yes (Other)
  Sender: FDA-Public Use
  Company Number: US-ASTRAZENECA-2008UW27412

PATIENT
  Age: 57 Year
  Sex: Male
  Weight: 99.8 kg

DRUGS (1)
  1. SEROQUEL [Suspect]
     Indication: INSOMNIA
     Dosage: 25- 200 MG
     Route: 048
     Dates: start: 20050101, end: 20060101

REACTIONS (2)
  - ADVERSE DRUG REACTION [None]
  - TYPE 2 DIABETES MELLITUS [None]
